FAERS Safety Report 19655943 (Version 1)
Quarter: 2021Q3

REPORT INFORMATION
  Report Type: Spontaneous
  Country: FR (occurrence: FR)
  Receive Date: 20210804
  Receipt Date: 20210804
  Transmission Date: 20211014
  Serious: Yes (Other)
  Sender: FDA-Public Use
  Company Number: FR-MYLANLABS-2021M1046932

PATIENT
  Age: 51 Year
  Sex: Male
  Weight: 99.6 kg

DRUGS (5)
  1. PROPOFOL MYLAN [Suspect]
     Active Substance: PROPOFOL
     Indication: INDUCTION OF ANAESTHESIA
     Dosage: 900 MILLIGRAM, TOTAL
     Route: 042
     Dates: start: 20210115, end: 20210115
  2. CEFAZOLINE MYLAN [Suspect]
     Active Substance: CEFAZOLIN SODIUM
     Indication: ANTIBIOTIC PROPHYLAXIS
     Dosage: 2 GRAM, TOTAL
     Route: 042
     Dates: start: 20210115, end: 20210115
  3. PARACETAMOL B BRAUN [Suspect]
     Active Substance: ACETAMINOPHEN
     Indication: ANALGESIC INTERVENTION SUPPORTIVE THERAPY
     Dosage: 1 GRAM, QD
     Route: 042
     Dates: start: 20210115, end: 20210115
  4. REMIFENTANIL MYLAN [Suspect]
     Active Substance: REMIFENTANIL
     Indication: INDUCTION AND MAINTENANCE OF ANAESTHESIA
     Dosage: 100 UG AT 1:00 PM, 10 UG AT 1:20 PM, 20 UG AT 1:40 PM
     Route: 042
     Dates: start: 20210115, end: 20210115
  5. NEFOPAM MYLAN [Suspect]
     Active Substance: NEFOPAM
     Indication: ANALGESIC INTERVENTION SUPPORTIVE THERAPY
     Dosage: 20 MILLIGRAM, TOTAL
     Route: 042
     Dates: start: 20210115, end: 20210115

REACTIONS (3)
  - Lip oedema [Recovered/Resolved]
  - Hypersensitivity [Recovered/Resolved]
  - Dysphonia [Recovered/Resolved]

NARRATIVE: CASE EVENT DATE: 20210115
